FAERS Safety Report 9192011 (Version 1)
Quarter: 2013Q1

REPORT INFORMATION
  Report Type: Spontaneous
  Country: JP (occurrence: None)
  Receive Date: 20130325
  Receipt Date: 20130325
  Transmission Date: 20140127
  Serious: Yes (Hospitalization)
  Sender: FDA-Public Use
  Company Number: 2013S1000792

PATIENT
  Age: 67 Year
  Sex: Female

DRUGS (1)
  1. LIVALO (PITAVASTATIN) TABLETS 2 MG [Suspect]
     Indication: DYSLIPIDAEMIA
     Route: 048
     Dates: start: 201012

REACTIONS (1)
  - Autoimmune hepatitis [None]
